FAERS Safety Report 22296060 (Version 5)
Quarter: 2024Q2

REPORT INFORMATION
  Report Type: Spontaneous
  Country: US (occurrence: US)
  Receive Date: 20230508
  Receipt Date: 20240607
  Transmission Date: 20240716
  Serious: Yes (Disabling, Other)
  Sender: FDA-Public Use
  Company Number: US-HORIZON THERAPEUTICS-HZN-2023-003357

PATIENT
  Age: 69 Year
  Sex: Female

DRUGS (45)
  1. TEPEZZA [Suspect]
     Active Substance: TEPROTUMUMAB-TRBW
     Indication: Endocrine ophthalmopathy
     Dosage: FIRST INFUSION
     Route: 042
     Dates: start: 20200805
  2. TEPEZZA [Suspect]
     Active Substance: TEPROTUMUMAB-TRBW
     Indication: Graves^ disease
     Dosage: SECOND INFUSION
     Route: 042
     Dates: start: 20200826
  3. TEPEZZA [Suspect]
     Active Substance: TEPROTUMUMAB-TRBW
     Dosage: THIRD INFUSION
     Route: 042
     Dates: start: 20200916
  4. TEPEZZA [Suspect]
     Active Substance: TEPROTUMUMAB-TRBW
     Dosage: 1140 MILLIGRAM (FOURTH INFUSION)
     Route: 042
     Dates: start: 20201007
  5. TEPEZZA [Suspect]
     Active Substance: TEPROTUMUMAB-TRBW
     Dosage: FIFTH INFUSION
     Route: 042
     Dates: start: 20201028
  6. TEPEZZA [Suspect]
     Active Substance: TEPROTUMUMAB-TRBW
     Dosage: SIXTH INFUSION
     Route: 042
     Dates: start: 20201118
  7. TEPEZZA [Suspect]
     Active Substance: TEPROTUMUMAB-TRBW
     Dosage: 1100 MILLIGRAM (SEVENTH INFUSION)
     Route: 042
     Dates: start: 20201209
  8. TEPEZZA [Suspect]
     Active Substance: TEPROTUMUMAB-TRBW
     Dosage: EIGHTH INFUSION
     Route: 042
     Dates: start: 20210517
  9. VITAMIN D3 [Concomitant]
     Active Substance: CHOLECALCIFEROL
     Dosage: UNK
     Route: 048
     Dates: end: 20230726
  10. ATIVAN [Concomitant]
     Active Substance: LORAZEPAM
     Dosage: 0.5 MG, QID
     Route: 048
     Dates: end: 20230726
  11. ESTRACE [Concomitant]
     Active Substance: ESTRADIOL
     Dosage: 0.1 MG/GM
     Route: 067
  12. CALCIUM CARBONATE\CHOLECALCIFEROL [Concomitant]
     Active Substance: CALCIUM CARBONATE\CHOLECALCIFEROL
     Dosage: UNK
     Route: 048
     Dates: end: 20231120
  13. FLAXSEED [Concomitant]
     Active Substance: FLAX SEED
     Dosage: 1 CAPSULE
     Route: 048
     Dates: end: 20220914
  14. MACRODANTIN [Concomitant]
     Active Substance: NITROFURANTOIN
     Dosage: UNK
     Route: 048
     Dates: start: 20200609, end: 20220914
  15. KENALOG [Concomitant]
     Active Substance: TRIAMCINOLONE ACETONIDE
     Dosage: 0.1 % OINTMENT
     Dates: start: 20200703, end: 20220914
  16. SONATA [Concomitant]
     Active Substance: ZALEPLON
     Dosage: UNK
     Route: 048
     Dates: end: 20220914
  17. PREMPRO [Concomitant]
     Active Substance: ESTROGENS, CONJUGATED\MEDROXYPROGESTERONE ACETATE
     Dosage: UNK
     Route: 048
     Dates: end: 20220914
  18. LEXAPRO [Concomitant]
     Active Substance: ESCITALOPRAM OXALATE
     Dosage: UNK
     Route: 048
     Dates: start: 20210601, end: 20220914
  19. TENORMIN [Concomitant]
     Active Substance: ATENOLOL
     Route: 048
  20. BELSOMRA [Concomitant]
     Active Substance: SUVOREXANT
  21. MAGNESIUM OXIDE [Concomitant]
     Active Substance: MAGNESIUM OXIDE
     Dosage: UNK UNK, QD
  22. ANTIVERT [Concomitant]
     Active Substance: MECLIZINE HYDROCHLORIDE
     Dosage: UNK UNK, TID (TAKE 12.5-25 MG BY MOUTH 3 TIMES DAILY AS NEEDED)
     Route: 048
  23. TAPAZOLE [Concomitant]
     Active Substance: METHIMAZOLE
     Dosage: UNK UNK, QD
     Route: 048
  24. ONDANSETRON [Concomitant]
     Active Substance: ONDANSETRON
     Dosage: UNK UNK, TID
     Route: 048
  25. SALAGEN [Concomitant]
     Active Substance: PILOCARPINE HYDROCHLORIDE
     Dosage: UNK UNK, TID
     Route: 048
  26. XIIDRA [Concomitant]
     Active Substance: LIFITEGRAST
     Dosage: UNK UNK, BID
  27. LINZESS [Concomitant]
     Active Substance: LINACLOTIDE
  28. ESTERIFIED ESTROGENS AND METHYLTESTOSTERONE [Concomitant]
     Active Substance: ESTROGENS, CONJUGATED\ESTROGENS, ESTERIFIED\ESTRONE SODIUM SULFATE\METHYLTESTOSTERONE
  29. ERYTHROMYCIN [Concomitant]
     Active Substance: ERYTHROMYCIN
  30. ACETAMINOPHEN AND CODEINE [Concomitant]
     Active Substance: ACETAMINOPHEN\CODEINE PHOSPHATE
  31. PROPOFOL [Concomitant]
     Active Substance: PROPOFOL
     Route: 042
  32. REMIFENTANIL [Concomitant]
     Active Substance: REMIFENTANIL
     Route: 042
  33. LIDOCAINE [Concomitant]
     Active Substance: LIDOCAINE
  34. ANCEF [Concomitant]
     Active Substance: CEFAZOLIN SODIUM
  35. ALCAINE [Concomitant]
     Active Substance: PROPARACAINE HYDROCHLORIDE
  36. BSS [Concomitant]
     Active Substance: CALCIUM CHLORIDE\MAGNESIUM CHLORIDE\POTASSIUM CHLORIDE\SODIUM ACETATE\SODIUM CHLORIDE\SODIUM CITRATE
  37. NORCO [Concomitant]
     Active Substance: ACETAMINOPHEN\HYDROCODONE BITARTRATE
  38. ROXICODONE [Concomitant]
     Active Substance: OXYCODONE HYDROCHLORIDE
  39. DILAUDID [Concomitant]
     Active Substance: HYDROMORPHONE HYDROCHLORIDE
  40. ZALEPLON [Concomitant]
     Active Substance: ZALEPLON
     Indication: Insomnia
     Dosage: 5 MG, QD (ONE CAPSULE BY MOUTH EVERY NIGHT)
     Route: 048
  41. OSCAL [Concomitant]
     Active Substance: CALCIUM CARBONATE
     Dosage: UNK UNK, QD
     Route: 048
  42. VESICARE [Concomitant]
     Active Substance: SOLIFENACIN SUCCINATE
     Dosage: 5 MILLIGRAM, QD
     Route: 048
     Dates: end: 20230726
  43. AMBIEN [Concomitant]
     Active Substance: ZOLPIDEM TARTRATE
     Dosage: UNK
     Dates: start: 20190802, end: 20201007
  44. PROVERA [Concomitant]
     Active Substance: MEDROXYPROGESTERONE ACETATE
     Dosage: UNK
     Dates: start: 20170414, end: 20201007
  45. SELENIUM [Concomitant]
     Active Substance: SELENIUM

REACTIONS (32)
  - Deafness permanent [Not Recovered/Not Resolved]
  - Physical disability [Not Recovered/Not Resolved]
  - Disability [Not Recovered/Not Resolved]
  - Bipolar II disorder [Unknown]
  - Diarrhoea haemorrhagic [Unknown]
  - Pain [Not Recovered/Not Resolved]
  - Injury [Not Recovered/Not Resolved]
  - Anxiety [Not Recovered/Not Resolved]
  - Concomitant disease aggravated [Not Recovered/Not Resolved]
  - Discomfort [Not Recovered/Not Resolved]
  - General physical health deterioration [Not Recovered/Not Resolved]
  - Impaired quality of life [Not Recovered/Not Resolved]
  - Emotional distress [Not Recovered/Not Resolved]
  - Economic problem [Not Recovered/Not Resolved]
  - Ageusia [Recovering/Resolving]
  - Oropharyngeal pain [Unknown]
  - Hyperhidrosis [Unknown]
  - Vision blurred [Unknown]
  - Dry eye [Unknown]
  - Product quality issue [Unknown]
  - Tinnitus [Not Recovered/Not Resolved]
  - Nausea [Unknown]
  - Muscle spasms [Recovering/Resolving]
  - Diarrhoea [Recovering/Resolving]
  - Hot flush [Recovered/Resolved]
  - COVID-19 [Recovering/Resolving]
  - Glucose tolerance impaired [Unknown]
  - Weight decreased [Unknown]
  - Product supply issue [Unknown]
  - Aphthous ulcer [Unknown]
  - Headache [Unknown]
  - Chills [Unknown]

NARRATIVE: CASE EVENT DATE: 20200101
